FAERS Safety Report 7955598-3 (Version None)
Quarter: 2011Q4

REPORT INFORMATION
  Report Type: 
  Country: None (occurrence: None)
  Receive Date: 20111202
  Receipt Date: 20111128
  Transmission Date: 20120403
  Serious: Yes (Life-Threatening)
  Sender: FDA-Public Use
  Company Number: FR-ASTRAZENECA-2011SE72082

PATIENT
  Age: 80 Year
  Sex: Female

DRUGS (8)
  1. PROTELOS [Suspect]
     Indication: OSTEOPOROSIS
     Route: 048
     Dates: start: 20101210, end: 20110906
  2. PIASCLEDINE [Suspect]
     Indication: OSTEOARTHRITIS
     Route: 048
     Dates: end: 20110912
  3. UN ALPHA [Suspect]
     Route: 048
  4. GAVISCON [Concomitant]
     Dosage: AS REQUIRED
     Route: 048
  5. OMEPRAZOLE [Suspect]
     Route: 048
     Dates: start: 20091007, end: 20110906
  6. NEBIVOLOL HCL [Concomitant]
     Route: 048
     Dates: start: 20110907
  7. ACETAMINOPHEN [Concomitant]
     Dosage: AS REQUIRED
     Route: 048
  8. LEVOTHYROXINE SODIUM [Concomitant]
     Route: 048
     Dates: start: 20110907

REACTIONS (1)
  - BONE MARROW FAILURE [None]
